FAERS Safety Report 14365820 (Version 3)
Quarter: 2018Q1

REPORT INFORMATION
  Report Type: Report from Study
  Country: ES (occurrence: ES)
  Receive Date: 20180109
  Receipt Date: 20180301
  Transmission Date: 20180509
  Serious: Yes (Death, Hospitalization, Other)
  Sender: FDA-Public Use
  Company Number: ES-AMGEN-ESPSL2017189098

PATIENT
  Age: 96 Year
  Sex: Female

DRUGS (1)
  1. NPLATE [Suspect]
     Active Substance: ROMIPLOSTIM
     Indication: THROMBOCYTOPENIC PURPURA
     Dosage: 200 MUG, QWK
     Route: 065

REACTIONS (6)
  - Pneumonia [Unknown]
  - Influenza like illness [Recovered/Resolved]
  - Platelet count increased [Unknown]
  - Pulmonary oedema [Unknown]
  - Death [Fatal]
  - Bronchitis [Unknown]
